FAERS Safety Report 21753889 (Version 4)
Quarter: 2023Q1

REPORT INFORMATION
  Report Type: Spontaneous
  Country: US (occurrence: US)
  Receive Date: 20221220
  Receipt Date: 20230122
  Transmission Date: 20230418
  Serious: Yes (Hospitalization, Other)
  Sender: FDA-Public Use
  Company Number: US-MALLINCKRODT-T202206511

PATIENT
  Sex: Female

DRUGS (5)
  1. H.P. ACTHAR [Suspect]
     Active Substance: CORTICOTROPIN
     Indication: Uveitis
     Dosage: UNK
     Route: 065
     Dates: start: 20211223
  2. H.P. ACTHAR [Suspect]
     Active Substance: CORTICOTROPIN
     Dosage: 0.5 MILLILITER (40 UNITS), TWICE A WEEK
     Route: 058
     Dates: start: 202212, end: 202212
  3. H.P. ACTHAR [Suspect]
     Active Substance: CORTICOTROPIN
     Dosage: ONE TIME DOSE OF 80 UNITS
     Route: 065
     Dates: start: 202212
  4. HUMIRA [Suspect]
     Active Substance: ADALIMUMAB
     Indication: Uveitis
     Dosage: UNK
     Route: 065
  5. COUMADIN [Suspect]
     Active Substance: WARFARIN SODIUM
     Indication: Thrombosis
     Dosage: UNK
     Route: 065

REACTIONS (9)
  - Cellulitis [Unknown]
  - Uveitis [Recovering/Resolving]
  - Urinary tract infection [Not Recovered/Not Resolved]
  - Feeling abnormal [Unknown]
  - Injection site bruising [Recovering/Resolving]
  - Tooth infection [Unknown]
  - Nasopharyngitis [Not Recovered/Not Resolved]
  - Expired product administered [Unknown]
  - Inappropriate schedule of product administration [Unknown]

NARRATIVE: CASE EVENT DATE: 20220101
